FAERS Safety Report 10049327 (Version 1)
Quarter: 2014Q2

REPORT INFORMATION
  Report Type: Spontaneous
  Country: JP (occurrence: JP)
  Receive Date: 20140401
  Receipt Date: 20140401
  Transmission Date: 20141212
  Serious: Yes (Other)
  Sender: FDA-Public Use
  Company Number: JP-JNJFOC-20140314893

PATIENT
  Sex: 0

DRUGS (1)
  1. LOPEMIN [Suspect]
     Indication: PRODUCT USED FOR UNKNOWN INDICATION
     Route: 048

REACTIONS (4)
  - Pancreatitis [Unknown]
  - Lipase increased [Unknown]
  - Blood elastase increased [Unknown]
  - Amylase increased [Unknown]
